FAERS Safety Report 8106549-2 (Version None)
Quarter: 2012Q1

REPORT INFORMATION
  Report Type: 
  Country: None (occurrence: None)
  Receive Date: 20120202
  Receipt Date: 20120119
  Transmission Date: 20120608
  Serious: Yes (Life-Threatening, Hospitalization)
  Sender: FDA-Public Use
  Company Number: DE-RANBAXY-2012R1-52151

PATIENT
  Age: 66 Year
  Sex: Male
  Weight: 59 kg

DRUGS (1)
  1. AMOXICILLIN [Suspect]
     Indication: PNEUMONIA
     Dosage: 1000MG, TID
     Route: 048
     Dates: start: 20110822, end: 20110823

REACTIONS (1)
  - THROMBOCYTOPENIA [None]
